FAERS Safety Report 6761300-3 (Version None)
Quarter: 2010Q2

REPORT INFORMATION
  Report Type: 
  Country: None (occurrence: None)
  Receive Date: 20100608
  Receipt Date: 20070328
  Transmission Date: 20101027
  Serious: Yes (Other)
  Sender: FDA-Public Use
  Company Number: PHHY2007MX03555

PATIENT
  Sex: Female

DRUGS (1)
  1. DIOVAN HCT [Suspect]
     Indication: HYPERTENSION
     Dosage: 1 TABLET, DAILY
     Route: 048
     Dates: start: 20070310, end: 20070311

REACTIONS (5)
  - CRYING [None]
  - DEPRESSION [None]
  - DRUG PRESCRIBING ERROR [None]
  - HEADACHE [None]
  - HYPERTHYROIDISM [None]
